FAERS Safety Report 4594816-9 (Version None)
Quarter: 2005Q1

REPORT INFORMATION
  Report Type: 
  Country: None (occurrence: None)
  Receive Date: 20050223
  Receipt Date: 20050210
  Transmission Date: 20050727
  Serious: Yes (Death, Hospitalization)
  Sender: FDA-Public Use
  Company Number: 2005RR-00454

PATIENT
  Age: 71 Year
  Sex: Male

DRUGS (2)
  1. METFORMIN HCL [Suspect]
     Dosage: ORAL
     Route: 048
     Dates: end: 20050129
  2. OMEPRAZOLE [Suspect]
     Indication: DYSPEPSIA
     Dosage: ORAL
     Route: 048
     Dates: start: 20050126, end: 20050129

REACTIONS (4)
  - COAGULOPATHY [None]
  - HEPATIC FAILURE [None]
  - HYPOTENSION [None]
  - LACTIC ACIDOSIS [None]
